FAERS Safety Report 9359487 (Version 2)
Quarter: 2013Q3

REPORT INFORMATION
  Report Type: Report from Study
  Country: JP (occurrence: JP)
  Receive Date: 20130620
  Receipt Date: 20130802
  Transmission Date: 20140515
  Serious: Yes (Death, Hospitalization)
  Sender: FDA-Public Use
  Company Number: JP-009507513-1306JPN009631

PATIENT
  Age: 80 Year
  Sex: Male
  Weight: 41 kg

DRUGS (5)
  1. GLACTIV [Suspect]
     Indication: TYPE 2 DIABETES MELLITUS
     Dosage: 50 MG, QD
     Route: 048
     Dates: start: 20120221, end: 20120406
  2. AMARYL [Suspect]
     Indication: TYPE 2 DIABETES MELLITUS
     Dosage: 1 MG, QD
     Route: 048
     Dates: start: 20120221, end: 20120408
  3. CETAPRIL [Concomitant]
     Dosage: UNK
     Dates: end: 20120408
  4. LOCHOL (FLUVASTATIN SODIUM) [Concomitant]
     Dosage: UNK
     Dates: end: 20120408
  5. GLUCOBAY [Concomitant]
     Dosage: UNK
     Dates: end: 20120408

REACTIONS (1)
  - Acute myocardial infarction [Fatal]
